FAERS Safety Report 5337859-X (Version None)
Quarter: 2007Q2

REPORT INFORMATION
  Report Type: 
  Country: None (occurrence: None)
  Receive Date: 20070308
  Receipt Date: 20070119
  Transmission Date: 20071010
  Serious: Yes (Other)
  Sender: FDA-Public Use
  Company Number: 2006-BP-15178BP

PATIENT
  Age: 48 Year
  Sex: Female

DRUGS (3)
  1. SPIRIVA [Suspect]
     Indication: ASTHMA
     Dosage: (18 MCG), IH
     Route: 055
     Dates: start: 20060901
  2. ADVAIR DISKUS 100/50 [Concomitant]
  3. ALBUTEROL SULFATE [Concomitant]

REACTIONS (1)
  - HYPERSENSITIVITY [None]
